FAERS Safety Report 4321681-7 (Version None)
Quarter: 2004Q1

REPORT INFORMATION
  Report Type: 
  Country: None (occurrence: None)
  Receive Date: 20040322
  Receipt Date: 20031009
  Transmission Date: 20041129
  Serious: No
  Sender: FDA-Public Use
  Company Number: US-BRISTOL-MYERS SQUIBB COMPANY-12413464

PATIENT
  Age: 39 Year
  Sex: Female

DRUGS (5)
  1. MONISTAT [Suspect]
     Indication: VAGINAL MYCOSIS
     Route: 067
     Dates: start: 20031006, end: 20031007
  2. SYNTHROID [Concomitant]
  3. DEPAKOTE [Concomitant]
  4. MULTIVITAMIN [Concomitant]
  5. PRAVACHOL [Concomitant]

REACTIONS (2)
  - GENITAL PRURITUS FEMALE [None]
  - VAGINAL BURNING SENSATION [None]
